FAERS Safety Report 8494199-8 (Version None)
Quarter: 2012Q3

REPORT INFORMATION
  Report Type: 
  Country: None (occurrence: None)
  Receive Date: 20120709
  Receipt Date: 20120703
  Transmission Date: 20120928
  Serious: Yes (Hospitalization)
  Sender: FDA-Public Use
  Company Number: PHEH2012US013156

PATIENT

DRUGS (10)
  1. FOCALIN [Suspect]
     Dosage: 30 MG, UNK
  2. CELEXA [Concomitant]
  3. RAMIPRIL [Concomitant]
  4. ZYRTEC [Suspect]
  5. JUNEL 1.5/30 [Concomitant]
  6. DEXMETHYLPHENIDATE HYDROCHLORIDE [Concomitant]
     Dosage: 10 MG, UNK
  7. XANAX [Concomitant]
     Dosage: 25 MG, UNK
  8. SINGULAIR [Concomitant]
     Dosage: 10 MG, UNK
  9. VITAMIN B-12 [Concomitant]
  10. FLONASE [Concomitant]

REACTIONS (2)
  - HYPERSENSITIVITY [None]
  - BIPOLAR II DISORDER [None]
